FAERS Safety Report 7642953-4 (Version None)
Quarter: 2011Q3

REPORT INFORMATION
  Report Type: 
  Country: None (occurrence: None)
  Receive Date: 20110728
  Receipt Date: 20110720
  Transmission Date: 20111222
  Serious: Yes (Death, Hospitalization, Other)
  Sender: FDA-Public Use
  Company Number: US-US-EMD SERONO, INC.-7072276

PATIENT
  Sex: Female

DRUGS (4)
  1. OXYGEN THERAPY [Concomitant]
     Indication: EMPHYSEMA
  2. REBIF [Suspect]
     Indication: MULTIPLE SCLEROSIS
     Dates: start: 20080502, end: 20110701
  3. MANY MEDICATIONS [Concomitant]
  4. OXYGEN THERAPY [Concomitant]
     Indication: CHRONIC OBSTRUCTIVE PULMONARY DISEASE

REACTIONS (5)
  - PROCEDURAL COMPLICATION [None]
  - HEART RATE DECREASED [None]
  - DYSPNOEA [None]
  - CARDIAC ARREST [None]
  - GASTRIC ULCER HAEMORRHAGE [None]
